FAERS Safety Report 5196182-7 (Version None)
Quarter: 2006Q4

REPORT INFORMATION
  Report Type: 
  Country: None (occurrence: None)
  Receive Date: 20061222
  Receipt Date: 20061212
  Transmission Date: 20070319
  Serious: Yes (Other)
  Sender: FDA-Public Use
  Company Number: 230002L06ARG

PATIENT
  Age: 14 Year
  Sex: Male

DRUGS (1)
  1. REBIF [Suspect]
     Indication: SECONDARY PROGRESSIVE MULTIPLE SCLEROSIS
     Dosage: 22 G, 2 IN 1 WEEKS

REACTIONS (3)
  - DEPRESSION [None]
  - DISABILITY [None]
  - SUICIDE ATTEMPT [None]
